FAERS Safety Report 7929525-9 (Version None)
Quarter: 2011Q4

REPORT INFORMATION
  Report Type: 
  Country: None (occurrence: None)
  Receive Date: 20111121
  Receipt Date: 20111108
  Transmission Date: 20120403
  Serious: Yes (Hospitalization)
  Sender: FDA-Public Use
  Company Number: GB-RANBAXY-2011R1-50351

PATIENT

DRUGS (2)
  1. NAPROXEN [Suspect]
     Indication: PAIN
     Dosage: 500 MG, BID
     Route: 048
     Dates: end: 20111027
  2. ANADIN EXTRA [Suspect]
     Indication: PAIN
     Dosage: 1 OR 2 TABLETS AS NEEDED USUALLY ABOUT TWICE A DAY (2 DF, BID)
     Route: 065

REACTIONS (2)
  - DUODENAL ULCER [None]
  - MELAENA [None]
